FAERS Safety Report 21519381 (Version 6)
Quarter: 2023Q2

REPORT INFORMATION
  Report Type: Report from Study
  Country: US (occurrence: US)
  Receive Date: 20221028
  Receipt Date: 20230530
  Transmission Date: 20230721
  Serious: Yes (Hospitalization)
  Sender: FDA-Public Use
  Company Number: US-ARGENX-2022-ARGX-US000735

PATIENT
  Age: 80 Year
  Sex: Male

DRUGS (1)
  1. VYVGART [Suspect]
     Active Substance: EFGARTIGIMOD ALFA-FCAB
     Indication: Myasthenia gravis

REACTIONS (7)
  - Respiratory syncytial virus infection [Unknown]
  - Myasthenia gravis [Unknown]
  - Pain in extremity [Unknown]
  - Weight decreased [Unknown]
  - Inappropriate schedule of product administration [Unknown]
  - Cardiac disorder [Not Recovered/Not Resolved]
  - Respiratory tract infection [Unknown]

NARRATIVE: CASE EVENT DATE: 20221001
